FAERS Safety Report 18380872 (Version 2)
Quarter: 2020Q4

REPORT INFORMATION
  Report Type: Spontaneous
  Country: FR (occurrence: FR)
  Receive Date: 20201014
  Receipt Date: 20201105
  Transmission Date: 20210114
  Serious: Yes (Hospitalization)
  Sender: FDA-Public Use
  Company Number: FR-ABBVIE-20K-056-3604939-00

PATIENT
  Age: 65 Year
  Sex: Female
  Weight: 55 kg

DRUGS (2)
  1. ADALIMUMAB [Suspect]
     Active Substance: ADALIMUMAB
     Indication: SPONDYLITIS
     Route: 058
     Dates: start: 202001, end: 202006
  2. SIMPONI [Suspect]
     Active Substance: GOLIMUMAB
     Indication: SPONDYLITIS
     Route: 065
     Dates: start: 20200713, end: 20200713

REACTIONS (6)
  - Central nervous system vasculitis [Recovering/Resolving]
  - Hypersensitivity vasculitis [Recovering/Resolving]
  - Product use in unapproved indication [Unknown]
  - Renal vasculitis [Recovering/Resolving]
  - Myocarditis [Recovering/Resolving]
  - Diffuse vasculitis [Recovering/Resolving]

NARRATIVE: CASE EVENT DATE: 202008
